FAERS Safety Report 6068604-0 (Version None)
Quarter: 2009Q1

REPORT INFORMATION
  Report Type: 
  Country: None (occurrence: None)
  Receive Date: 20090203
  Receipt Date: 20090121
  Transmission Date: 20090719
  Serious: Yes (Death, Hospitalization)
  Sender: FDA-Public Use
  Company Number: RENA-1000353

PATIENT
  Age: 69 Year
  Sex: Male
  Weight: 44.3 kg

DRUGS (15)
  1. RENAGEL [Suspect]
     Indication: HYPERPHOSPHATAEMIA
     Dosage: 0.25 G, TID, ORAL
     Route: 048
     Dates: start: 20080101, end: 20081222
  2. CINACALCET HYDROCHLORIDE (REGPARA)(CINACALCET HYDROCHLORIDE) TABLET [Suspect]
     Indication: DRUG USE FOR UNKNOWN INDICATION
     Dosage: 25 MG, QD, ORAL
     Route: 048
     Dates: start: 20080128, end: 20081222
  3. BAYASPIRIN (ACETYLSALICYLIC ACID) TABLET [Concomitant]
  4. MUCOSTA (REBAMIPIDE) TABLET [Concomitant]
  5. PURSENNID (SENNOSIDE A+B, SENNOSIDE A+B CALCIUM) TABLET [Concomitant]
  6. HALCION [Concomitant]
  7. WARFARIN SODIUM [Concomitant]
  8. LANSOPRAZOLE [Concomitant]
  9. SIGMART (NICORANDIL) TABLET [Concomitant]
  10. GASMOTIN (MOSAPRIDE CITRATE) TABLET [Concomitant]
  11. OXAROL (MAXACALCITOL) INJECTION [Concomitant]
  12. GASCON (DIMETICONE) TABLET [Concomitant]
  13. SILECE (FLUNITRAZEPAM) TABLET [Concomitant]
  14. VITANEURIN (FURSULTIAMINE, HYDROXOCOBALAMIN ACETATE, PYRIDOXAL PHOSPHA [Concomitant]
  15. FESIN (SACCHARATED IRON OXIDE) INJECTION [Concomitant]

REACTIONS (3)
  - GASTROINTESTINAL AMYLOIDOSIS [None]
  - GASTROINTESTINAL NECROSIS [None]
  - MESENTERIC OCCLUSION [None]
